FAERS Safety Report 9996624 (Version 1)
Quarter: 2014Q1

REPORT INFORMATION
  Report Type: Spontaneous
  Country: US (occurrence: None)
  Receive Date: 20140218
  Receipt Date: 20140218
  Transmission Date: 20141002
  Serious: Yes (Other)
  Sender: FDA-Public Use
  Company Number: 1000051318

PATIENT
  Age: 52 Year
  Sex: Male

DRUGS (3)
  1. VIIBRYD [Suspect]
     Indication: PHOBIA
     Route: 048
     Dates: start: 20130923, end: 20130929
  2. ASPIRIN (ACETYLSALICYLIC ACID) (ACETYLSALICYLIC ACID) [Concomitant]
  3. OMEPRAZOLE (OMEPRAZOLE) (OMEPRAZOLE) [Concomitant]

REACTIONS (6)
  - Palpitations [None]
  - Paranoia [None]
  - Cold-stimulus headache [None]
  - Feeling abnormal [None]
  - Abnormal dreams [None]
  - Off label use [None]
